FAERS Safety Report 7714677-6 (Version None)
Quarter: 2011Q3

REPORT INFORMATION
  Report Type: 
  Country: None (occurrence: None)
  Receive Date: 20110804
  Receipt Date: 20110425
  Transmission Date: 20111222
  Serious: No
  Sender: FDA-Public Use
  Company Number: 2011-05751

PATIENT
  Age: 57 Year
  Sex: Male
  Weight: 90.7 kg

DRUGS (1)
  1. RAPAFLO [Suspect]
     Indication: BENIGN PROSTATIC HYPERPLASIA
     Dosage: ONE CAPSULE DAILY, ORAL
     Route: 048
     Dates: start: 20110317, end: 20110401

REACTIONS (2)
  - DRY EYE [None]
  - NASAL DRYNESS [None]
